FAERS Safety Report 19673880 (Version 1)
Quarter: 2021Q3

REPORT INFORMATION
  Report Type: Spontaneous
  Country: US (occurrence: US)
  Receive Date: 20210806
  Receipt Date: 20210806
  Transmission Date: 20211014
  Serious: Yes (Hospitalization, Other)
  Sender: FDA-Public Use
  Company Number: None

PATIENT
  Age: 67 Year
  Sex: Female
  Weight: 33.11 kg

DRUGS (5)
  1. IMDEVIMAB 600 MG [Suspect]
     Active Substance: IMDEVIMAB
     Indication: COVID-19
     Route: 042
  2. REGLAN [Concomitant]
     Active Substance: METOCLOPRAMIDE HYDROCHLORIDE
  3. NORMAL SALINE [Concomitant]
     Active Substance: SODIUM CHLORIDE
  4. IOHOXOL [Concomitant]
  5. CASIRIVIMAB 600 MG [Suspect]
     Active Substance: CASIRIVIMAB
     Indication: COVID-19
     Route: 042

REACTIONS (1)
  - Cerebrovascular accident [None]

NARRATIVE: CASE EVENT DATE: 20210805
